FAERS Safety Report 8379059-5 (Version None)
Quarter: 2012Q2

REPORT INFORMATION
  Report Type: 
  Country: None (occurrence: None)
  Receive Date: 20120522
  Receipt Date: 20120522
  Transmission Date: 20120825
  Serious: Yes (Other)
  Sender: FDA-Public Use
  Company Number: None

PATIENT
  Sex: Female

DRUGS (1)
  1. XOLAIR [Suspect]
     Dosage: 300MG Q4WEEKS SUBQ
     Route: 058
     Dates: start: 20120202, end: 20120516

REACTIONS (1)
  - ARTHRALGIA [None]
